FAERS Safety Report 11922162 (Version 2)
Quarter: 2016Q1

REPORT INFORMATION
  Report Type: Report from Study
  Country: ES (occurrence: ES)
  Receive Date: 20160115
  Receipt Date: 20160122
  Transmission Date: 20160526
  Serious: Yes (Hospitalization)
  Sender: FDA-Public Use
  Company Number: ES-GLAXOSMITHKLINE-ES2016003976

PATIENT
  Age: 66 Year
  Sex: Male
  Weight: 75 kg

DRUGS (15)
  1. BLINDED FLUTICASONE FUR+UMECLIDINIUM+VILANTEROL [Suspect]
     Active Substance: FLUTICASONE FUROATE\UMECLIDINIUM BROMIDE\VILANTEROL TRIFENATATE
     Indication: CHRONIC OBSTRUCTIVE PULMONARY DISEASE
     Dosage: UNK
     Route: 055
     Dates: start: 20150504
  2. BLINDED FLUTICASONE FUROATE + VILANTEROL TRIFENATATE [Suspect]
     Active Substance: FLUTICASONE FUROATE\VILANTEROL TRIFENATATE
     Indication: CHRONIC OBSTRUCTIVE PULMONARY DISEASE
     Dosage: UNK
     Route: 055
     Dates: start: 20150504
  3. METILPREDNISOLONA [Concomitant]
     Active Substance: METHYLPREDNISOLONE
     Indication: TRANSURETHRAL PROSTATECTOMY
     Dosage: 40 MG, SINGLE
     Route: 042
     Dates: start: 20160112, end: 20160112
  4. BLINDED FLUTICASONE FUR+UMECLIDINIUM+VILANTEROL [Suspect]
     Active Substance: FLUTICASONE FUROATE\UMECLIDINIUM BROMIDE\VILANTEROL TRIFENATATE
     Indication: CHRONIC OBSTRUCTIVE PULMONARY DISEASE
     Dosage: UNK
     Route: 055
     Dates: start: 20150504
  5. OMEPRAZOL [Concomitant]
     Active Substance: OMEPRAZOLE
     Indication: TRANSURETHRAL PROSTATECTOMY
     Dosage: 40 MG, SINGLE
     Route: 042
     Dates: start: 20160111, end: 20160111
  6. IPRATROPIO [Concomitant]
     Active Substance: IPRATROPIUM BROMIDE
     Indication: TRANSURETHRAL PROSTATECTOMY
     Dosage: 500 ?G, SINGLE
     Route: 055
     Dates: start: 20160112, end: 20160112
  7. BLINDED UMECLIDINIUM BR+VILANTEROL TRIFENATATE [Suspect]
     Active Substance: UMECLIDINIUM BROMIDE\VILANTEROL TRIFENATATE
     Indication: CHRONIC OBSTRUCTIVE PULMONARY DISEASE
     Dosage: UNK
     Route: 055
     Dates: start: 20150504
  8. DIAZEPAM. [Concomitant]
     Active Substance: DIAZEPAM
     Indication: TRANSURETHRAL PROSTATECTOMY
     Dosage: 5 MG, PRN
     Route: 048
     Dates: start: 20160111
  9. PARACETAMOL [Concomitant]
     Active Substance: ACETAMINOPHEN
     Dosage: 1 G, SINGLE
     Route: 048
     Dates: start: 20160112
  10. DEXKETOPROFEN [Concomitant]
     Active Substance: DEXKETOPROFEN
     Indication: TRANSURETHRAL PROSTATECTOMY
     Dosage: 50 MG, PRN
     Route: 042
     Dates: start: 20160111
  11. TAMSULOSINA [Concomitant]
     Active Substance: TAMSULOSIN HYDROCHLORIDE
     Indication: TRANSURETHRAL PROSTATECTOMY
     Dosage: 0.4 MG, QD
     Route: 048
     Dates: start: 20160112
  12. BEMIPARINA [Concomitant]
     Active Substance: BEMIPARIN SODIUM
     Indication: TRANSURETHRAL PROSTATECTOMY
     Dosage: 2.5 IU, QD
     Route: 058
     Dates: start: 20160112
  13. PARACETAMOL [Concomitant]
     Active Substance: ACETAMINOPHEN
     Indication: TRANSURETHRAL PROSTATECTOMY
     Dosage: 1 G, SINGLE
     Route: 042
     Dates: start: 20160111, end: 20160112
  14. RINGER LACTATO [Concomitant]
     Active Substance: CALCIUM CHLORIDE\POTASSIUM CHLORIDE\SODIUM CHLORIDE\SODIUM LACTATE
     Indication: TRANSURETHRAL PROSTATECTOMY
     Dosage: 500 MG, CO
     Route: 042
     Dates: start: 20160111, end: 20160112
  15. SALBUTAMOL [Concomitant]
     Active Substance: ALBUTEROL
     Indication: TRANSURETHRAL PROSTATECTOMY
     Dosage: 2.5 MG, SINGLE
     Route: 055
     Dates: start: 20160112, end: 20160112

REACTIONS (1)
  - Benign prostatic hyperplasia [Recovered/Resolved with Sequelae]

NARRATIVE: CASE EVENT DATE: 20160111
